FAERS Safety Report 4555354-2 (Version None)
Quarter: 2005Q1

REPORT INFORMATION
  Report Type: 
  Country: None (occurrence: None)
  Receive Date: 20050118
  Receipt Date: 20050118
  Transmission Date: 20050727
  Serious: Yes (Other)
  Sender: FDA-Public Use
  Company Number: None

PATIENT
  Age: 35 Year
  Sex: Female
  Weight: 86.6 kg

DRUGS (2)
  1. NOVOLOG [Suspect]
     Indication: DIABETES MELLITUS
     Dosage: 66 UNITS OVER 24 HOURS SUBCUTANEOUS
     Route: 058
     Dates: start: 20040929, end: 20041221
  2. BACLOFEN [Suspect]
     Indication: INTERVERTEBRAL DISC DISORDER
     Dosage: 10MG TID ORAL
     Route: 048
     Dates: start: 20041120, end: 20041221

REACTIONS (2)
  - BLOOD GLUCOSE DECREASED [None]
  - DRUG INTERACTION [None]
